FAERS Safety Report 22052539 (Version 1)
Quarter: 2023Q1

REPORT INFORMATION
  Report Type: Spontaneous
  Country: US (occurrence: US)
  Receive Date: 20230302
  Receipt Date: 20230302
  Transmission Date: 20230418
  Serious: No
  Sender: FDA-Public Use
  Company Number: US-AUROBINDO-AUR-APL-2022-052460

PATIENT
  Age: 74 Year
  Sex: Male

DRUGS (1)
  1. AZELASTINE HYDROCHLORIDE [Suspect]
     Active Substance: AZELASTINE HYDROCHLORIDE
     Indication: Product used for unknown indication
     Dosage: UNK (SINCE FROM 7 YEAR FOR AN UNKNOWN REASON)
     Route: 045

REACTIONS (2)
  - Product dose omission issue [Unknown]
  - Device malfunction [Unknown]
